FAERS Safety Report 7276509-2 (Version None)
Quarter: 2011Q1

REPORT INFORMATION
  Report Type: 
  Country: None (occurrence: None)
  Receive Date: 20110204
  Receipt Date: 20110126
  Transmission Date: 20110831
  Serious: Yes (Other)
  Sender: FDA-Public Use
  Company Number: GR-ASTRAZENECA-2011SE04596

PATIENT
  Age: 45 Year
  Sex: Female
  Weight: 45 kg

DRUGS (3)
  1. ONE-ALPHA [Suspect]
     Indication: OSTEOPOROSIS
     Route: 048
  2. CALCIORAL [Concomitant]
  3. CRESTOR [Suspect]
     Route: 048

REACTIONS (1)
  - CHEST DISCOMFORT [None]
